FAERS Safety Report 5923733-4 (Version None)
Quarter: 2008Q4

REPORT INFORMATION
  Report Type: 
  Country: None (occurrence: None)
  Receive Date: 20081020
  Receipt Date: 20081017
  Transmission Date: 20090506
  Serious: Yes (Other)
  Sender: FDA-Public Use
  Company Number: D0059069A

PATIENT

DRUGS (4)
  1. REQUIP [Suspect]
     Dosage: 4MG THREE TIMES PER DAY
     Route: 048
  2. STALEVO 100 [Suspect]
     Dosage: 1300MG PER DAY
     Route: 048
  3. AZILECT [Suspect]
     Dosage: 1MG IN THE MORNING
     Route: 048
  4. INDERAL [Suspect]
     Dosage: 80MG THREE TIMES PER DAY
     Route: 048

REACTIONS (1)
  - SUDDEN ONSET OF SLEEP [None]
